FAERS Safety Report 15734800 (Version 2)
Quarter: 2018Q4

REPORT INFORMATION
  Report Type: Spontaneous
  Country: JP (occurrence: JP)
  Receive Date: 20181218
  Receipt Date: 20181228
  Transmission Date: 20190205
  Serious: Yes (Other)
  Sender: FDA-Public Use
  Company Number: PHHY2018JP187040

PATIENT

DRUGS (1)
  1. IMATINIB. [Suspect]
     Active Substance: IMATINIB MESYLATE
     Indication: GASTROINTESTINAL STROMAL TUMOUR
     Dosage: UNK
     Route: 065

REACTIONS (4)
  - Gastrointestinal stromal tumour [Unknown]
  - Metastases to bone [Unknown]
  - Malignant neoplasm progression [Unknown]
  - Drug resistance [Unknown]
